FAERS Safety Report 6923200-5 (Version None)
Quarter: 2010Q3

REPORT INFORMATION
  Report Type: 
  Country: None (occurrence: None)
  Receive Date: 20100813
  Receipt Date: 20100802
  Transmission Date: 20110219
  Serious: Yes (Death, Hospitalization, Other)
  Sender: FDA-Public Use
  Company Number: JP-ROCHE-714596

PATIENT
  Sex: Female
  Weight: 35 kg

DRUGS (6)
  1. AVASTIN [Suspect]
     Indication: LUNG ADENOCARCINOMA METASTATIC
     Route: 041
     Dates: start: 20100412
  2. AVASTIN [Suspect]
     Route: 041
  3. CARBOPLATIN [Concomitant]
     Route: 041
     Dates: start: 20100413, end: 20100413
  4. TAXOL [Concomitant]
     Route: 041
     Dates: start: 20100413, end: 20100413
  5. KETOPROFEN [Concomitant]
     Dosage: DRUG: MOHRUS TAPE
     Route: 061
     Dates: start: 20100129, end: 20100706
  6. GASTER D [Concomitant]
     Route: 048
     Dates: start: 20100425, end: 20100705

REACTIONS (6)
  - DISEASE PROGRESSION [None]
  - GASTROINTESTINAL PERFORATION [None]
  - HYPONATRAEMIA [None]
  - NAUSEA [None]
  - NEUTROPHIL COUNT DECREASED [None]
  - VOMITING [None]
